FAERS Safety Report 8963147 (Version 2)
Quarter: 2013Q1

REPORT INFORMATION
  Report Type: Spontaneous
  Country: US (occurrence: US)
  Receive Date: 20121214
  Receipt Date: 20130131
  Transmission Date: 20140127
  Serious: Yes (Hospitalization, Other)
  Sender: FDA-Public Use
  Company Number: US-ELI_LILLY_AND_COMPANY-US201212002643

PATIENT
  Sex: Male

DRUGS (1)
  1. HUMULIN NPH [Suspect]
     Indication: DIABETES MELLITUS
     Dosage: 30 U, BID
     Dates: start: 1997

REACTIONS (2)
  - Cerebrovascular accident [Recovered/Resolved with Sequelae]
  - Aphasia [Not Recovered/Not Resolved]
